FAERS Safety Report 19032012 (Version 1)
Quarter: 2021Q1

REPORT INFORMATION
  Report Type: Spontaneous
  Country: US (occurrence: US)
  Receive Date: 20210319
  Receipt Date: 20210319
  Transmission Date: 20210420
  Serious: Yes (Other)
  Sender: FDA-Public Use
  Company Number: US-PFIZER INC-2021288606

PATIENT
  Age: 2 Month

DRUGS (1)
  1. HYDROCORTISONE ACETATE. [Suspect]
     Active Substance: HYDROCORTISONE ACETATE
     Dosage: UNK (STRESS DOSE)

REACTIONS (2)
  - Septo-optic dysplasia [Unknown]
  - Diabetes insipidus [Unknown]
